FAERS Safety Report 6921972-7 (Version None)
Quarter: 2010Q3

REPORT INFORMATION
  Report Type: 
  Country: None (occurrence: None)
  Receive Date: 20100812
  Receipt Date: 20100416
  Transmission Date: 20110219
  Serious: Yes (Other)
  Sender: FDA-Public Use
  Company Number: US-GENENTECH-300698

PATIENT
  Sex: Female
  Weight: 61.678 kg

DRUGS (1)
  1. XOLAIR [Suspect]
     Indication: ASTHMA
     Dosage: 150 MG, 1/MONTH
     Route: 058
     Dates: start: 20060125

REACTIONS (2)
  - BASAL CELL CARCINOMA [None]
  - MALIGNANT MELANOMA [None]
